FAERS Safety Report 10383744 (Version 1)
Quarter: 2014Q3

REPORT INFORMATION
  Report Type: Spontaneous
  Country: US (occurrence: None)
  Receive Date: 20140813
  Receipt Date: 20140813
  Transmission Date: 20150326
  Serious: Yes (Death)
  Sender: FDA-Public Use
  Company Number: None

PATIENT
  Age: 78 Year
  Sex: Male
  Weight: 103 kg

DRUGS (7)
  1. TAMSULOSIN [Concomitant]
     Active Substance: TAMSULOSIN
  2. LISINOPRIL. [Concomitant]
     Active Substance: LISINOPRIL
  3. LEVOTHYROXINE [Concomitant]
     Active Substance: LEVOTHYROXINE
     Route: 048
     Dates: end: 20140805
  4. PROSCAR [Concomitant]
     Active Substance: FINASTERIDE
  5. CARVEDILOL. [Concomitant]
     Active Substance: CARVEDILOL
  6. RIVAROXABAN [Suspect]
     Active Substance: RIVAROXABAN
     Dosage: 1 TABLET ?DAILY IN PM?ORAL
     Route: 048
     Dates: end: 20140804
  7. AMIODARONE [Concomitant]
     Active Substance: AMIODARONE

REACTIONS (3)
  - Haemorrhage intracranial [None]
  - Unresponsive to stimuli [None]
  - Cardio-respiratory arrest [None]

NARRATIVE: CASE EVENT DATE: 20140805
